FAERS Safety Report 9029125 (Version 1)
Quarter: 2013Q1

REPORT INFORMATION
  Report Type: Spontaneous
  Country: IT (occurrence: IT)
  Receive Date: 20130122
  Receipt Date: 20130122
  Transmission Date: 20140127
  Serious: Yes (Life-Threatening)
  Sender: FDA-Public Use
  Company Number: IT-ASTRAZENECA-2013SE03457

PATIENT
  Age: 20337 Day
  Sex: Male

DRUGS (5)
  1. BRILIQUE [Suspect]
     Indication: ACUTE CORONARY SYNDROME
     Route: 048
     Dates: start: 20121024, end: 20121029
  2. CONGESCOR [Concomitant]
  3. CARDIOASPIRIN [Concomitant]
  4. TRIATEC [Concomitant]
  5. TORVAST [Concomitant]

REACTIONS (1)
  - Sinus arrest [Recovered/Resolved]
